FAERS Safety Report 21823829 (Version 1)
Quarter: 2023Q1

REPORT INFORMATION
  Report Type: Spontaneous
  Country: US (occurrence: None)
  Receive Date: 20230104
  Receipt Date: 20230104
  Transmission Date: 20230417
  Serious: Yes (Other)
  Sender: FDA-Public Use
  Company Number: None

PATIENT
  Age: 3 Year
  Sex: Female

DRUGS (2)
  1. TOBRAMYCIN [Suspect]
     Active Substance: TOBRAMYCIN
     Indication: Chronic respiratory failure
     Dosage: 300 MG/5ML??INHALE 5 ML VIA NE4BULIZER TWICE DAILY; ALTERNATE 28 DAYS ON/ 28 DAYS OFF ?
     Route: 055
     Dates: start: 20220413
  2. TOBRAMYCIN [Suspect]
     Active Substance: TOBRAMYCIN
     Indication: Hypercapnia
     Dosage: FREQUENCY : TWICE A DAY;?OTHER ROUTE : VIA NEBULIZER;?
     Route: 050

REACTIONS (2)
  - Cystic fibrosis [None]
  - Infection [None]

NARRATIVE: CASE EVENT DATE: 20230104
